FAERS Safety Report 8246054-6 (Version None)
Quarter: 2012Q1

REPORT INFORMATION
  Report Type: 
  Country: None (occurrence: None)
  Receive Date: 20120330
  Receipt Date: 20120329
  Transmission Date: 20120608
  Serious: No
  Sender: FDA-Public Use
  Company Number: US-PFIZER INC-2011108906

PATIENT

DRUGS (1)
  1. NICOTINE [Suspect]

REACTIONS (1)
  - NICOTINE DEPENDENCE [None]
